FAERS Safety Report 7552317-X (Version None)
Quarter: 2011Q2

REPORT INFORMATION
  Report Type: 
  Country: None (occurrence: None)
  Receive Date: 20110616
  Receipt Date: 20050519
  Transmission Date: 20111010
  Serious: Yes (Hospitalization)
  Sender: FDA-Public Use
  Company Number: PHHO2005JP06751

PATIENT
  Sex: Female

DRUGS (7)
  1. DIOVAN [Suspect]
     Dosage: 80 MG, BID
     Route: 048
     Dates: start: 20031119, end: 20041028
  2. ADALAT [Concomitant]
     Indication: HYPERTENSION
     Dosage: UNKNOWN
  3. PHENOBARBITAL TAB [Concomitant]
     Indication: DEPRESSION
     Dosage: UNKNOWN
  4. PROTHIADEN [Concomitant]
     Indication: DEPRESSION
     Dosage: UNKNOWN
  5. DIOVAN [Suspect]
     Indication: HYPERTENSION
     Dosage: 80 MG, QD
     Route: 048
     Dates: start: 20030120, end: 20031118
  6. SELBEX [Concomitant]
     Indication: GASTRITIS
     Dosage: UNKNOWN
  7. DEPAS [Concomitant]
     Indication: DEPRESSION
     Dosage: UNKNOWN

REACTIONS (3)
  - C-REACTIVE PROTEIN INCREASED [None]
  - CARDIOMEGALY [None]
  - BACK PAIN [None]
